FAERS Safety Report 10032458 (Version 2)
Quarter: 2014Q1

REPORT INFORMATION
  Report Type: Spontaneous
  Country: FR (occurrence: FR)
  Receive Date: 20140324
  Receipt Date: 20140324
  Transmission Date: 20141002
  Serious: Yes (Other)
  Sender: FDA-Public Use
  Company Number: FR-ASTRAZENECA-2014SE14321

PATIENT
  Age: 770 Month
  Sex: Male
  Weight: 75 kg

DRUGS (2)
  1. ESOMEPRAZOLE [Suspect]
     Indication: DYSPHAGIA
     Route: 048
     Dates: start: 20130405, end: 20140225
  2. ESOMEPRAZOLE [Suspect]
     Indication: OESOPHAGEAL DISORDER
     Route: 048
     Dates: start: 20130405, end: 20140225

REACTIONS (4)
  - Dermatitis bullous [Recovering/Resolving]
  - Pruritus [Recovered/Resolved]
  - Skin exfoliation [Unknown]
  - Sedation [Unknown]
